FAERS Safety Report 6340289-5 (Version None)
Quarter: 2009Q3

REPORT INFORMATION
  Report Type: 
  Country: None (occurrence: None)
  Receive Date: 20090902
  Receipt Date: 20070731
  Transmission Date: 20100115
  Serious: Yes (Hospitalization)
  Sender: FDA-Public Use
  Company Number: TPH-00212

PATIENT
  Age: 27 Year
  Sex: Female

DRUGS (1)
  1. ETHINYL ESTRADIOL AND LEVONORGESTREL [Suspect]
     Indication: CONTRACEPTION
     Dosage: ORAL
     Route: 048
     Dates: start: 20070417, end: 20070507

REACTIONS (3)
  - DRUG INEFFECTIVE [None]
  - JAUNDICE [None]
  - PRURITUS [None]
